FAERS Safety Report 7351292-0 (Version None)
Quarter: 2011Q1

REPORT INFORMATION
  Report Type: 
  Country: None (occurrence: None)
  Receive Date: 20110314
  Receipt Date: 20100122
  Transmission Date: 20110831
  Serious: Yes (Death, Hospitalization)
  Sender: FDA-Public Use
  Company Number: RS-SANOFI-AVENTIS-2010SA003502

PATIENT
  Age: 68 Year
  Sex: Male

DRUGS (6)
  1. OXALIPLATIN [Suspect]
     Route: 041
     Dates: start: 20091124, end: 20091124
  2. AVASTIN [Suspect]
     Route: 042
     Dates: start: 20091124, end: 20091124
  3. AVASTIN [Suspect]
     Route: 042
     Dates: start: 20091016, end: 20091016
  4. 5-FU [Suspect]
     Route: 042
     Dates: start: 20091016, end: 20091016
  5. OXALIPLATIN [Suspect]
     Route: 041
     Dates: start: 20091016, end: 20091016
  6. 5-FU [Suspect]
     Route: 042
     Dates: start: 20091124, end: 20091124

REACTIONS (1)
  - GASTROINTESTINAL PERFORATION [None]
